FAERS Safety Report 5757756-5 (Version None)
Quarter: 2008Q2

REPORT INFORMATION
  Report Type: 
  Country: None (occurrence: None)
  Receive Date: 20080529
  Receipt Date: 20080516
  Transmission Date: 20081010
  Serious: Yes (Life-Threatening, Hospitalization)
  Sender: FDA-Public Use
  Company Number: 000838

PATIENT
  Age: 62 Year
  Sex: Male

DRUGS (2)
  1. PLETAL [Suspect]
     Indication: CEREBRAL INFARCTION
     Dosage: 100 MG, BID
     Route: 048
     Dates: start: 20080328, end: 20080416
  2. NORVASC [Concomitant]

REACTIONS (5)
  - ANAEMIA [None]
  - DECREASED APPETITE [None]
  - GASTROINTESTINAL ULCER HAEMORRHAGE [None]
  - PLATELET COUNT DECREASED [None]
  - RENAL IMPAIRMENT [None]
